FAERS Safety Report 8796248 (Version 1)
Quarter: 2012Q4

REPORT INFORMATION
  Report Type: 
  Country: US (occurrence: US)
  Receive Date: 20120920
  Receipt Date: 20120920
  Transmission Date: 20130627
  Serious: Yes (Hospitalization)
  Sender: FDA-Public Use
  Company Number: US-BAYER-2012-096945

PATIENT
  Age: 42 Year
  Sex: Female
  Weight: 75.28 kg

DRUGS (5)
  1. YAZ [Suspect]
  2. YASMIN [Suspect]
  3. CIPROFLOXACIN [Concomitant]
     Dosage: 500
     Dates: start: 20090706
  4. WELLBUTRIN [Concomitant]
     Dosage: daily
     Dates: start: 20090905
  5. PLAVIX [Concomitant]

REACTIONS (1)
  - Cerebral infarction [None]
